FAERS Safety Report 25578187 (Version 5)
Quarter: 2025Q3

REPORT INFORMATION
  Report Type: Report from Study
  Country: CO (occurrence: CO)
  Receive Date: 20250718
  Receipt Date: 20250911
  Transmission Date: 20251020
  Serious: Yes (Hospitalization, Other)
  Sender: TAKEDA
  Company Number: CO-TAKEDA-2025TUS041783

PATIENT
  Age: 75 Year
  Sex: Male
  Weight: 65 kg

DRUGS (3)
  1. IXAZOMIB [Suspect]
     Active Substance: IXAZOMIB
     Indication: Plasma cell myeloma
     Dates: start: 20250524, end: 20250811
  2. PREDNISOLONE [Concomitant]
     Active Substance: PREDNISOLONE
  3. MELPHALAN [Concomitant]
     Active Substance: MELPHALAN

REACTIONS (11)
  - Blood creatinine increased [Unknown]
  - Vomiting [Unknown]
  - Diarrhoea [Unknown]
  - Acute kidney injury [Recovered/Resolved]
  - Escherichia infection [Recovered/Resolved]
  - Diarrhoea infectious [Recovered/Resolved]
  - Dyspepsia [Unknown]
  - Dizziness [Unknown]
  - Product use issue [Unknown]
  - Treatment noncompliance [Unknown]
  - General physical health deterioration [Unknown]

NARRATIVE: CASE EVENT DATE: 20250621
